FAERS Safety Report 12088883 (Version 1)
Quarter: 2016Q1

REPORT INFORMATION
  Report Type: Spontaneous
  Country: US (occurrence: US)
  Receive Date: 20160218
  Receipt Date: 20160218
  Transmission Date: 20160526
  Serious: Yes (Hospitalization, Other)
  Sender: FDA-Public Use
  Company Number: US-GLAXOSMITHKLINE-B0959528A

PATIENT
  Age: 52 Year
  Sex: Male

DRUGS (3)
  1. VALACYCLOVIR [Suspect]
     Active Substance: VALACYCLOVIR HYDROCHLORIDE
     Indication: HERPES ZOSTER
     Dosage: 1 G, TID
     Route: 065
  2. ACYCLOVIR. [Suspect]
     Active Substance: ACYCLOVIR
     Indication: VARICELLA ZOSTER VIRUS INFECTION
  3. ACYCLOVIR. [Suspect]
     Active Substance: ACYCLOVIR
     Indication: HERPES SIMPLEX
     Dosage: 600 MG, BID
     Route: 042

REACTIONS (17)
  - Dizziness [Recovered/Resolved]
  - Hostility [Recovered/Resolved]
  - Mental impairment [Recovered/Resolved]
  - Asthenia [Recovered/Resolved]
  - Irritability [Recovered/Resolved]
  - Restlessness [Recovered/Resolved]
  - Hallucination, auditory [Recovered/Resolved]
  - Hypertension [Unknown]
  - Somnolence [Recovered/Resolved]
  - Disorientation [Recovered/Resolved]
  - Soliloquy [Recovered/Resolved]
  - Muscle contractions involuntary [Recovered/Resolved]
  - Neurotoxicity [Recovered/Resolved]
  - Speech disorder [Recovered/Resolved]
  - Seizure [Recovered/Resolved]
  - Status epilepticus [Recovered/Resolved]
  - Toxicity to various agents [Recovered/Resolved]
